FAERS Safety Report 5304158-1 (Version None)
Quarter: 2007Q2

REPORT INFORMATION
  Report Type: 
  Country: None (occurrence: None)
  Receive Date: 20070423
  Receipt Date: 20070410
  Transmission Date: 20071010
  Serious: Yes (Hospitalization)
  Sender: FDA-Public Use
  Company Number: PHBS2007NO06267

PATIENT
  Age: 35 Year
  Sex: Male

DRUGS (1)
  1. RITALIN [Suspect]
     Route: 065

REACTIONS (3)
  - BLOOD AMYLASE INCREASED [None]
  - LIPASE INCREASED [None]
  - PANCREATITIS [None]
